FAERS Safety Report 5797350-3 (Version None)
Quarter: 2008Q2

REPORT INFORMATION
  Report Type: 
  Country: None (occurrence: None)
  Receive Date: 20080630
  Receipt Date: 20080620
  Transmission Date: 20081010
  Serious: Yes (Hospitalization)
  Sender: FDA-Public Use
  Company Number: 2008016382

PATIENT
  Age: 40 Year
  Sex: Male

DRUGS (2)
  1. BENADRYL [Suspect]
     Dosage: (25 MG), ORAL
     Route: 048
  2. PHENYTOIN [Suspect]
     Indication: CONVULSION
     Dosage: (100 MG), ORAL
     Route: 048

REACTIONS (2)
  - INTENTIONAL OVERDOSE [None]
  - UNRESPONSIVE TO STIMULI [None]
